FAERS Safety Report 21256949 (Version 1)
Quarter: 2022Q3

REPORT INFORMATION
  Report Type: Spontaneous
  Country: US (occurrence: US)
  Receive Date: 20220826
  Receipt Date: 20220826
  Transmission Date: 20221027
  Serious: Yes (Other)
  Sender: FDA-Public Use
  Company Number: US-JNJFOC-20220840332

PATIENT
  Sex: Female

DRUGS (1)
  1. SPRAVATO [Suspect]
     Active Substance: ESKETAMINE
     Indication: Product used for unknown indication

REACTIONS (6)
  - Suicidal ideation [Unknown]
  - Euphoric mood [Unknown]
  - Hypoaesthesia [Unknown]
  - Dyspnoea [Unknown]
  - Panic attack [Unknown]
  - Morbid thoughts [Unknown]

NARRATIVE: CASE EVENT DATE: 20220101
